FAERS Safety Report 21679095 (Version 1)
Quarter: 2022Q4

REPORT INFORMATION
  Report Type: Spontaneous
  Country: BR (occurrence: BR)
  Receive Date: 20221204
  Receipt Date: 20221204
  Transmission Date: 20230113
  Serious: Yes (Other)
  Sender: FDA-Public Use
  Company Number: BR-ELI_LILLY_AND_COMPANY-BR202211011220

PATIENT
  Sex: Female

DRUGS (1)
  1. CYMBALTA [Suspect]
     Active Substance: DULOXETINE HYDROCHLORIDE
     Indication: Product used for unknown indication
     Dosage: 60 MG, EACH MORNING (TWO PILLS IN MORNING)
     Route: 048
     Dates: start: 2021

REACTIONS (2)
  - Intervertebral disc protrusion [Unknown]
  - Crohn^s disease [Recovering/Resolving]
